FAERS Safety Report 5350559-5 (Version None)
Quarter: 2007Q2

REPORT INFORMATION
  Report Type: 
  Country: None (occurrence: None)
  Receive Date: 20070608
  Receipt Date: 20070531
  Transmission Date: 20071010
  Serious: Yes (Hospitalization, Other)
  Sender: FDA-Public Use
  Company Number: PHBS2007US07239

PATIENT
  Age: 13 Year
  Sex: Female

DRUGS (1)
  1. LIORESAL [Suspect]
     Indication: MUSCLE SPASTICITY
     Dosage: 179 MCG/DAY
     Route: 037

REACTIONS (5)
  - DRUG WITHDRAWAL SYNDROME [None]
  - HYPERTONIA [None]
  - MUSCLE SPASTICITY [None]
  - PARAESTHESIA [None]
  - PYREXIA [None]
